FAERS Safety Report 5519874-6 (Version None)
Quarter: 2007Q4

REPORT INFORMATION
  Report Type: 
  Country: None (occurrence: None)
  Receive Date: 20071116
  Receipt Date: 20071002
  Transmission Date: 20080405
  Serious: No
  Sender: FDA-Public Use
  Company Number: A0685679A

PATIENT
  Sex: Male

DRUGS (8)
  1. COREG CR [Suspect]
     Dosage: 40MG PER DAY
     Route: 048
  2. COREG [Suspect]
     Dosage: 25MG TWICE PER DAY
     Route: 048
  3. ZETIA [Concomitant]
  4. ENALAPRIL MALEATE [Concomitant]
  5. FUROSEMIDE [Concomitant]
  6. VITAMIN [Concomitant]
  7. ASPIRIN [Concomitant]
  8. PRILOSEC [Concomitant]

REACTIONS (5)
  - CHEST DISCOMFORT [None]
  - CHEST PAIN [None]
  - EYE IRRITATION [None]
  - EYE PAIN [None]
  - FATIGUE [None]
